FAERS Safety Report 13390023 (Version 1)
Quarter: 2017Q1

REPORT INFORMATION
  Report Type: Spontaneous
  Country: US (occurrence: US)
  Receive Date: 20170330
  Receipt Date: 20170330
  Transmission Date: 20170429
  Serious: Yes (Death, Hospitalization)
  Sender: FDA-Public Use
  Company Number: None

PATIENT
  Age: 84 Year
  Sex: Female

DRUGS (1)
  1. REPLESTA [Suspect]
     Active Substance: CHOLECALCIFEROL
     Indication: VITAMIN D DEFICIENCY
     Route: 048
     Dates: start: 2003, end: 2006

REACTIONS (4)
  - Nausea [None]
  - Feeling abnormal [None]
  - Overdose [None]
  - Abdominal discomfort [None]

NARRATIVE: CASE EVENT DATE: 20150201
